FAERS Safety Report 9431512 (Version 1)
Quarter: 2013Q3

REPORT INFORMATION
  Report Type: Spontaneous
  Country: FR (occurrence: FR)
  Receive Date: 20130730
  Receipt Date: 20130730
  Transmission Date: 20140515
  Serious: Yes (Hospitalization)
  Sender: FDA-Public Use
  Company Number: FR-PFIZER INC-2011194559

PATIENT
  Age: 54 Year
  Sex: Female

DRUGS (3)
  1. NEURONTIN [Suspect]
     Indication: MULTIPLE SCLEROSIS
     Dosage: 300 MG, 2X/DAY
     Route: 048
     Dates: start: 20110501, end: 20110525
  2. AUGMENTIN [Concomitant]
     Indication: URINARY TRACT INFECTION
     Dosage: 1 G, 3X/DAY
     Route: 048
     Dates: start: 20110429, end: 20110507
  3. SOLU-MEDROL [Concomitant]
     Indication: MULTIPLE SCLEROSIS
     Dosage: 1 G, 1X/DAY
     Route: 042
     Dates: start: 20110428, end: 20110430

REACTIONS (1)
  - Hepatocellular injury [Unknown]
